FAERS Safety Report 9385594 (Version 1)
Quarter: 2013Q3

REPORT INFORMATION
  Report Type: Spontaneous
  Country: DE (occurrence: None)
  Receive Date: 20130701
  Receipt Date: 20130701
  Transmission Date: 20140515
  Serious: Yes (Other)
  Sender: FDA-Public Use
  Company Number: GER/GER/13/0030224

PATIENT
  Age: 58 Year
  Sex: Male
  Weight: 93 kg

DRUGS (3)
  1. CETIRIZINE (CETIRIZINE) [Suspect]
     Indication: SEASONAL ALLERGY
     Route: 048
     Dates: start: 20130414, end: 20130428
  2. BISOPROLOL (BISOPROLOL) [Concomitant]
  3. CODIOVAN 80/12.5MG (CO-DIOVAN) [Concomitant]

REACTIONS (1)
  - Hypertensive crisis [None]
